FAERS Safety Report 7635022-0 (Version None)
Quarter: 2011Q3

REPORT INFORMATION
  Report Type: 
  Country: None (occurrence: None)
  Receive Date: 20110726
  Receipt Date: 20110714
  Transmission Date: 20111222
  Serious: Yes (Hospitalization)
  Sender: FDA-Public Use
  Company Number: US-JNJFOC-20110510117

PATIENT
  Sex: Male
  Weight: 91.9 kg

DRUGS (5)
  1. ANTIBIOTICS NOS [Concomitant]
     Indication: INFLAMMATORY BOWEL DISEASE
  2. REMICADE [Suspect]
     Indication: INFLAMMATORY BOWEL DISEASE
     Dosage: DOSE AND FREQUENCY UNSPECIFIED
     Route: 042
     Dates: start: 20080725, end: 20100818
  3. HUMIRA [Concomitant]
     Indication: INFLAMMATORY BOWEL DISEASE
     Dosage: DOSE AND FREQUENCY UNSPECIFIED
     Dates: start: 20100723
  4. PANTOPRAZOLE [Concomitant]
  5. PREDNISONE TAB [Concomitant]

REACTIONS (3)
  - ABSCESS INTESTINAL [None]
  - COLONIC STENOSIS [None]
  - ANAL ABSCESS [None]
